FAERS Safety Report 5206051-1 (Version None)
Quarter: 2007Q1

REPORT INFORMATION
  Report Type: 
  Country: None (occurrence: None)
  Receive Date: 20070105
  Receipt Date: 20061221
  Transmission Date: 20070707
  Serious: Yes (Other)
  Sender: FDA-Public Use
  Company Number: 430002L06GBR

PATIENT
  Sex: Male

DRUGS (2)
  1. NOVANTRONE [Suspect]
     Indication: RELAPSING-REMITTING MULTIPLE SCLEROSIS
  2. COPAXONE [Concomitant]

REACTIONS (1)
  - ACUTE PROMYELOCYTIC LEUKAEMIA [None]
